FAERS Safety Report 8597853-2 (Version None)
Quarter: 2012Q3

REPORT INFORMATION
  Report Type: 
  Country: None (occurrence: None)
  Receive Date: 20120816
  Receipt Date: 20120814
  Transmission Date: 20120928
  Serious: Yes (Death, Hospitalization, Other)
  Sender: FDA-Public Use
  Company Number: PHEH2006US00998

PATIENT
  Sex: Male
  Weight: 90.703 kg

DRUGS (11)
  1. DECADRON PHOSPHATE [Concomitant]
     Dosage: 12 MG, Q12H
  2. DEXAMETHASONE [Concomitant]
     Dosage: 32 MG, QD
     Route: 048
  3. THALOMID [Concomitant]
     Dosage: 200 MG, QD
  4. ZOMETA [Suspect]
     Indication: MULTIPLE MYELOMA
     Dosage: 4 MG, QMO
     Route: 042
     Dates: start: 20021216, end: 20050523
  5. MELPHALAN HYDROCHLORIDE [Concomitant]
  6. CYCLOPHOSPHAMIDE [Concomitant]
     Dosage: 150 MG, BID
  7. PS 341 [Concomitant]
     Dates: start: 20030201
  8. INTERFERON [Concomitant]
  9. AREDIA [Suspect]
     Indication: MULTIPLE MYELOMA
     Dosage: 90 MG, QMO
     Route: 042
     Dates: start: 19990101, end: 20020301
  10. PS 341 [Concomitant]
     Dates: start: 20030201
  11. ALLOPURINOL [Concomitant]
     Dosage: 300 MG, QD
     Route: 048

REACTIONS (56)
  - STREPTOCOCCAL SEPSIS [None]
  - CHILLS [None]
  - BONE LESION [None]
  - ORAL DISORDER [None]
  - SPINAL DEFORMITY [None]
  - DIZZINESS [None]
  - FACET JOINT SYNDROME [None]
  - NEUTROPENIA [None]
  - COMPRESSION FRACTURE [None]
  - PANCYTOPENIA [None]
  - AGRANULOCYTOSIS [None]
  - LUNG INFILTRATION [None]
  - RENAL FAILURE ACUTE [None]
  - ATELECTASIS [None]
  - PURULENT DISCHARGE [None]
  - SWELLING [None]
  - CARDIOMEGALY [None]
  - ATROPHY [None]
  - COAGULOPATHY [None]
  - PYREXIA [None]
  - MUSCULOSKELETAL PAIN [None]
  - OSTEOMYELITIS [None]
  - ANXIETY [None]
  - BACK PAIN [None]
  - DEHYDRATION [None]
  - METASTASES TO BONE [None]
  - RESPIRATORY FAILURE [None]
  - OSTEONECROSIS OF JAW [None]
  - DEFORMITY [None]
  - SOFT TISSUE INFECTION [None]
  - EMOTIONAL DISTRESS [None]
  - RIB FRACTURE [None]
  - NECK PAIN [None]
  - PNEUMONIA PNEUMOCOCCAL [None]
  - HYPOALBUMINAEMIA [None]
  - INTERVERTEBRAL DISC PROTRUSION [None]
  - PLEURAL EFFUSION [None]
  - VERTEBRAL FORAMINAL STENOSIS [None]
  - CARDIAC ARREST [None]
  - DIARRHOEA [None]
  - LUNG NEOPLASM MALIGNANT [None]
  - MASS [None]
  - BONE DISORDER [None]
  - GINGIVAL ERYTHEMA [None]
  - ARTERIOSCLEROSIS CORONARY ARTERY [None]
  - NEOPLASM MALIGNANT [None]
  - APLASTIC ANAEMIA [None]
  - MULTI-ORGAN FAILURE [None]
  - CHRONIC OBSTRUCTIVE PULMONARY DISEASE [None]
  - PAIN [None]
  - ORAL DISCOMFORT [None]
  - ORAL CANDIDIASIS [None]
  - GENERAL PHYSICAL HEALTH DETERIORATION [None]
  - OSTEOPENIA [None]
  - NEUROPATHY PERIPHERAL [None]
  - OSTEOARTHRITIS [None]
